FAERS Safety Report 14802896 (Version 2)
Quarter: 2018Q2

REPORT INFORMATION
  Report Type: Spontaneous
  Country: US (occurrence: US)
  Receive Date: 20180424
  Receipt Date: 20180425
  Transmission Date: 20180711
  Serious: Yes (Other)
  Sender: FDA-Public Use
  Company Number: US-CELGENEUS-USA-20180407210

PATIENT
  Age: 67 Year
  Sex: Female
  Weight: 44 kg

DRUGS (4)
  1. REVLIMID [Suspect]
     Active Substance: LENALIDOMIDE
     Dosage: 10 MILLIGRAM
     Route: 048
     Dates: start: 201710, end: 201801
  2. VELCADE [Concomitant]
     Active Substance: BORTEZOMIB
     Indication: PRODUCT USED FOR UNKNOWN INDICATION
     Route: 065
  3. REVLIMID [Suspect]
     Active Substance: LENALIDOMIDE
     Indication: PLASMA CELL MYELOMA
     Dosage: 25 MILLIGRAM
     Route: 048
     Dates: start: 201607
  4. XANAX [Concomitant]
     Active Substance: ALPRAZOLAM
     Indication: PRODUCT USED FOR UNKNOWN INDICATION
     Route: 065

REACTIONS (22)
  - Pharyngeal oedema [Recovered/Resolved]
  - Sinus congestion [Unknown]
  - Rhinorrhoea [Not Recovered/Not Resolved]
  - Decreased appetite [Unknown]
  - Nail ridging [Unknown]
  - Ear discomfort [Recovered/Resolved]
  - Productive cough [Not Recovered/Not Resolved]
  - Dyspnoea [Recovered/Resolved]
  - Confusional state [Recovered/Resolved]
  - Irritability [Recovered/Resolved]
  - Hypoacusis [Recovered/Resolved]
  - Weight decreased [Unknown]
  - Sinus disorder [Not Recovered/Not Resolved]
  - Asthenia [Unknown]
  - Throat irritation [Recovered/Resolved]
  - Vision blurred [Recovered/Resolved]
  - Skin tightness [Unknown]
  - Aggression [Unknown]
  - Poor quality sleep [Unknown]
  - Chest discomfort [Recovered/Resolved]
  - Contusion [Recovered/Resolved]
  - Dry mouth [Unknown]

NARRATIVE: CASE EVENT DATE: 201711
